FAERS Safety Report 19409874 (Version 1)
Quarter: 2021Q2

REPORT INFORMATION
  Report Type: Spontaneous
  Country: US (occurrence: US)
  Receive Date: 20210614
  Receipt Date: 20210614
  Transmission Date: 20210717
  Serious: Yes (Hospitalization)
  Sender: FDA-Public Use
  Company Number: US-ROCHE-2847635

PATIENT
  Sex: Female

DRUGS (24)
  1. BUMETANIDE. [Concomitant]
     Active Substance: BUMETANIDE
  2. ELIQUIS [Concomitant]
     Active Substance: APIXABAN
  3. HYDROCODONE BITARTRATE AND ACETAMINOPHEN [Concomitant]
     Active Substance: ACETAMINOPHEN\HYDROCODONE BITARTRATE
  4. MONTELUKAST [Concomitant]
     Active Substance: MONTELUKAST SODIUM
  5. JANUMET XR [Concomitant]
     Active Substance: METFORMIN HYDROCHLORIDE\SITAGLIPTIN PHOSPHATE
  6. LOSARTAN POTASSIUM. [Concomitant]
     Active Substance: LOSARTAN POTASSIUM
  7. ESBRIET [Suspect]
     Active Substance: PIRFENIDONE
     Indication: IDIOPATHIC PULMONARY FIBROSIS
     Dosage: 3 TABLETS
     Route: 048
     Dates: start: 20180806
  8. JANUVIA [Concomitant]
     Active Substance: SITAGLIPTIN PHOSPHATE
  9. LEVALBUTEROL. [Concomitant]
     Active Substance: LEVALBUTEROL
  10. METOPROLOL TARTRATE. [Concomitant]
     Active Substance: METOPROLOL TARTRATE
  11. ATORVASTATIN [Concomitant]
     Active Substance: ATORVASTATIN
  12. CYCLOBENZAPRINE. [Concomitant]
     Active Substance: CYCLOBENZAPRINE
  13. FOLBEE [Concomitant]
     Active Substance: CYANOCOBALAMIN\FOLIC ACID\PYRIDOXINE HYDROCHLORIDE
  14. LEVOFLOXACIN. [Concomitant]
     Active Substance: LEVOFLOXACIN
  15. METRONIDAZOLE. [Concomitant]
     Active Substance: METRONIDAZOLE
  16. OMEPRAZOLE. [Concomitant]
     Active Substance: OMEPRAZOLE
  17. AMIODARONE [Concomitant]
     Active Substance: AMIODARONE
  18. BENZONATATE. [Concomitant]
     Active Substance: BENZONATATE
  19. BUSPIRONE [Concomitant]
     Active Substance: BUSPIRONE HYDROCHLORIDE
  20. DIGOXIN. [Concomitant]
     Active Substance: DIGOXIN
  21. FAMOTIDINE. [Concomitant]
     Active Substance: FAMOTIDINE
  22. DOXYCYCLINE HYCLATE. [Concomitant]
     Active Substance: DOXYCYCLINE HYCLATE
  23. ONDANSETRON [Concomitant]
     Active Substance: ONDANSETRON
  24. PROMETHAZINE WITH CODEINE [Concomitant]
     Active Substance: CODEINE PHOSPHATE\PROMETHAZINE HYDROCHLORIDE

REACTIONS (2)
  - Device related sepsis [Unknown]
  - Liver disorder [Unknown]
